FAERS Safety Report 17147176 (Version 1)
Quarter: 2019Q4

REPORT INFORMATION
  Report Type: Spontaneous
  Country: US (occurrence: US)
  Receive Date: 20191212
  Receipt Date: 20191212
  Transmission Date: 20200122
  Serious: No
  Sender: FDA-Public Use
  Company Number: US-TEVA-2019-US-1150159

PATIENT
  Sex: Female

DRUGS (1)
  1. PROAIR HFA [Suspect]
     Active Substance: ALBUTEROL SULFATE
     Indication: ASTHMA
     Route: 065

REACTIONS (6)
  - Adverse drug reaction [Unknown]
  - Drug delivery system issue [Unknown]
  - Product quality issue [Unknown]
  - Bronchitis [Unknown]
  - Drug ineffective [Unknown]
  - Dyspnoea [Unknown]
